FAERS Safety Report 6168595-8 (Version None)
Quarter: 2009Q2

REPORT INFORMATION
  Report Type: 
  Country: None (occurrence: None)
  Receive Date: 20090423
  Receipt Date: 20090415
  Transmission Date: 20091009
  Serious: Yes (Congenital Anomaly)
  Sender: FDA-Public Use
  Company Number: ADE2009-0567

PATIENT

DRUGS (2)
  1. SERTRALINE HCL [Suspect]
     Indication: DEPRESSION
     Dosage: 150MG, , TRANSPLACENT.
     Route: 064
  2. ABILIFY [Suspect]
     Indication: BIPOLAR DISORDER
     Dosage: 15MG, QD, TRANSPLACENT.
     Route: 064

REACTIONS (4)
  - ABORTION INDUCED [None]
  - DEFORMITY THORAX [None]
  - FOETAL CHROMOSOME ABNORMALITY [None]
  - MATERNAL DRUGS AFFECTING FOETUS [None]
